FAERS Safety Report 13860738 (Version 1)
Quarter: 2017Q3

REPORT INFORMATION
  Report Type: Spontaneous
  Country: US (occurrence: US)
  Receive Date: 20170811
  Receipt Date: 20170811
  Transmission Date: 20171127
  Serious: Yes (Hospitalization)
  Sender: FDA-Public Use
  Company Number: None

PATIENT
  Age: 62 Year
  Sex: Female

DRUGS (18)
  1. CALCIUM/D [Concomitant]
  2. CAPECITABINE 500MG [Suspect]
     Active Substance: CAPECITABINE
     Indication: BREAST CANCER
     Route: 048
     Dates: start: 20170611
  3. PROAIR HFA AER [Concomitant]
  4. LEVETIRACETA [Concomitant]
  5. NITROFUR MAC [Concomitant]
     Active Substance: NITROFURANTOIN
  6. ASPIRIN. [Concomitant]
     Active Substance: ASPIRIN
  7. ONDANSETRON [Concomitant]
     Active Substance: ONDANSETRON
  8. PANTOPRAZOLE [Concomitant]
     Active Substance: PANTOPRAZOLE
  9. TYROID POW [Concomitant]
  10. FUROSEMIDE. [Concomitant]
     Active Substance: FUROSEMIDE
  11. HYDROCO/APAP [Concomitant]
     Active Substance: ACETAMINOPHEN\HYDROCODONE
  12. ARMOUR THYRO [Concomitant]
  13. MULTI VITAMIN [Concomitant]
     Active Substance: VITAMINS
  14. EXJADE [Concomitant]
     Active Substance: DEFERASIROX
  15. FENTANYL. [Concomitant]
     Active Substance: FENTANYL
  16. KEPPRA [Concomitant]
     Active Substance: LEVETIRACETAM
  17. MAGNESIUM [Concomitant]
     Active Substance: MAGNESIUM
  18. TAMOXIFEN [Concomitant]
     Active Substance: TAMOXIFEN

REACTIONS (1)
  - Hospitalisation [None]
